FAERS Safety Report 4556638-4 (Version None)
Quarter: 2005Q1

REPORT INFORMATION
  Report Type: 
  Country: None (occurrence: None)
  Receive Date: 20050120
  Receipt Date: 20050111
  Transmission Date: 20050727
  Serious: Yes (Life-Threatening, Hospitalization)
  Sender: FDA-Public Use
  Company Number: FR-BRISTOL-MYERS SQUIBB COMPANY-12828406

PATIENT
  Age: 64 Year
  Sex: Female

DRUGS (5)
  1. ENDOXAN [Suspect]
     Indication: CHRONIC LYMPHOCYTIC LEUKAEMIA
     Route: 042
     Dates: start: 20040828, end: 20040901
  2. FLUDARA [Suspect]
     Indication: CHRONIC LYMPHOCYTIC LEUKAEMIA
     Route: 042
     Dates: start: 20040828, end: 20040901
  3. MESNA [Concomitant]
     Dates: start: 20040828, end: 20040901
  4. SANDIMMUNE [Concomitant]
     Indication: PROPHYLAXIS
     Dates: start: 20040831
  5. CELLCEPT [Concomitant]
     Indication: PROPHYLAXIS
     Dates: start: 20040831, end: 20041003

REACTIONS (16)
  - ABNORMAL BEHAVIOUR [None]
  - ACALCULIA [None]
  - AGITATION [None]
  - AMNESTIC DISORDER [None]
  - COMA [None]
  - CONVULSION [None]
  - DIFFICULTY IN WALKING [None]
  - DISEASE PROGRESSION [None]
  - DISORIENTATION [None]
  - ENCEPHALOPATHY [None]
  - EXTRAPYRAMIDAL DISORDER [None]
  - HERPES ZOSTER [None]
  - PSYCHOMOTOR SKILLS IMPAIRED [None]
  - PYRAMIDAL TRACT SYNDROME [None]
  - TREMOR [None]
  - URINARY TRACT INFECTION PSEUDOMONAL [None]
